FAERS Safety Report 5748376-7 (Version None)
Quarter: 2008Q2

REPORT INFORMATION
  Report Type: 
  Country: None (occurrence: None)
  Receive Date: 20080521
  Receipt Date: 20080508
  Transmission Date: 20081010
  Serious: Yes (Death)
  Sender: FDA-Public Use
  Company Number: 233769J08USA

PATIENT
  Age: 63 Year
  Sex: Female
  Weight: 56 kg

DRUGS (6)
  1. REBIF [Suspect]
     Indication: MULTIPLE SCLEROSIS
     Dosage: 44 MCG, 3 IN 1 WEEKS, SUBCUTANEOUS
     Route: 058
     Dates: start: 20050126, end: 20070405
  2. ZANAFLEX [Concomitant]
  3. BACLOFEN [Concomitant]
  4. METOPROLOL (METOPROLOL /00376901/) [Concomitant]
  5. NOVALIN (INSULIN /00030501/) [Concomitant]
  6. INSULIN (INSULIN /00030501/) [Concomitant]

REACTIONS (1)
  - DEATH [None]
